FAERS Safety Report 5941338-6 (Version None)
Quarter: 2008Q4

REPORT INFORMATION
  Report Type: 
  Country: None (occurrence: None)
  Receive Date: 20081104
  Receipt Date: 20081104
  Transmission Date: 20090506
  Serious: Yes (Hospitalization)
  Sender: FDA-Public Use
  Company Number: None

PATIENT
  Age: 68 Year
  Sex: Male

DRUGS (12)
  1. METOPROLOL TARTRATE [Suspect]
     Indication: HYPERTENSION
     Dosage: 100MG BID PO
     Route: 048
  2. DILTIAZEM HCL [Suspect]
     Indication: HYPERTENSION
     Dosage: 360MG DAILY PO
     Route: 048
  3. ZOCOR [Concomitant]
  4. NEURONTIN [Suspect]
  5. FENOFIBRATE [Suspect]
  6. LOSARTAN POTASSIUM [Concomitant]
  7. LANTUS [Concomitant]
  8. NOVOLOG [Concomitant]
  9. BUPROPION HCL [Concomitant]
  10. PRILOSEC [Concomitant]
  11. BUMEX [Concomitant]
  12. LASIX [Concomitant]

REACTIONS (4)
  - BRADYCARDIA [None]
  - CHEST DISCOMFORT [None]
  - DIZZINESS [None]
  - NAUSEA [None]
